FAERS Safety Report 6750783-0 (Version None)
Quarter: 2010Q2

REPORT INFORMATION
  Report Type: 
  Country: None (occurrence: None)
  Receive Date: 20100602
  Receipt Date: 20100521
  Transmission Date: 20101027
  Serious: Yes (Death)
  Sender: FDA-Public Use
  Company Number: JP-SHIRE-SPV1-2010-01004

PATIENT

DRUGS (7)
  1. LANTHANUM CARBONATE [Suspect]
     Indication: HYPERPHOSPHATAEMIA
     Route: 048
     Dates: start: 20090518
  2. CALCIUM CARBONATE [Concomitant]
     Indication: HYPERPHOSPHATAEMIA
     Dosage: 1000MG
  3. ONEALFA [Concomitant]
     Dosage: 1 DF
     Route: 048
  4. ASPIRIN [Concomitant]
     Dosage: 100MG
     Route: 048
  5. TAKEPRON [Concomitant]
     Dosage: 15MG
     Route: 048
  6. MUCOSTA [Concomitant]
     Dosage: 300MG
     Route: 048
  7. EPADEL                             /01682401/ [Concomitant]
     Dosage: 1800MG
     Route: 048

REACTIONS (1)
  - MYOCARDIAL INFARCTION [None]
